FAERS Safety Report 12637354 (Version 1)
Quarter: 2016Q3

REPORT INFORMATION
  Report Type: Spontaneous
  Country: US (occurrence: US)
  Receive Date: 20160809
  Receipt Date: 20160809
  Transmission Date: 20161109
  Serious: No
  Sender: FDA-Public Use
  Company Number: US-BEH-2015057422

PATIENT
  Age: 55 Year
  Sex: Female
  Weight: 47 kg

DRUGS (14)
  1. ADVIL [Concomitant]
     Active Substance: IBUPROFEN
  2. PSYLLIUM HUSK [Concomitant]
     Active Substance: PSYLLIUM HUSK
  3. TRAMADOL. [Concomitant]
     Active Substance: TRAMADOL
  4. LIDOCAINE. [Concomitant]
     Active Substance: LIDOCAINE
  5. NORMAL SALINE [Concomitant]
     Active Substance: SODIUM CHLORIDE
  6. SYNTHROID [Concomitant]
     Active Substance: LEVOTHYROXINE SODIUM
  7. HYQVIA [Concomitant]
     Active Substance: HUMAN IMMUNOGLOBULIN G\HYALURONIDASE RECOMBINANT HUMAN
  8. SODIUM CHLORIDE. [Concomitant]
     Active Substance: SODIUM CHLORIDE
  9. EPIPEN [Concomitant]
     Active Substance: EPINEPHRINE
  10. ALLEGRA [Concomitant]
     Active Substance: FEXOFENADINE HYDROCHLORIDE
  11. TYLENOL [Concomitant]
     Active Substance: ACETAMINOPHEN
  12. PRIVIGEN [Suspect]
     Active Substance: HUMAN IMMUNOGLOBULIN G
     Indication: HYPOGLOBULINAEMIA
     Route: 042
     Dates: start: 20151007
  13. ACETAMINOPHEN. [Concomitant]
     Active Substance: ACETAMINOPHEN
  14. DIPHENHYDRAMINE. [Concomitant]
     Active Substance: DIPHENHYDRAMINE

REACTIONS (1)
  - Pharyngitis streptococcal [Unknown]

NARRATIVE: CASE EVENT DATE: 20151218
